FAERS Safety Report 5157957-3 (Version None)
Quarter: 2006Q4

REPORT INFORMATION
  Report Type: 
  Country: None (occurrence: None)
  Receive Date: 20061115
  Receipt Date: 20061102
  Transmission Date: 20070319
  Serious: Yes (Other)
  Sender: FDA-Public Use
  Company Number: 232102

PATIENT
  Age: 69 Year
  Sex: Male
  Weight: 100 kg

DRUGS (8)
  1. RITUXIMAB                  (RITUXIMAB) [Suspect]
     Indication: CHRONIC LYMPHOCYTIC LEUKAEMIA
     Dosage: 1050 MG, UNK, INTRAVENOUS
     Route: 042
     Dates: start: 20060123, end: 20060626
  2. FLUDARABINE PHOSPHATE [Suspect]
     Indication: CHRONIC LYMPHOCYTIC LEUKAEMIA
     Dosage: 50 MG, UNK, INTRAVENOUS
     Route: 042
     Dates: start: 20060124, end: 20060628
  3. CYCLOPHOSPHAMIDE [Suspect]
     Indication: CHRONIC LYMPHOCYTIC LEUKAEMIA
     Dosage: 50 MG, UNK, INTRAVENOUS
     Route: 042
     Dates: start: 20060124, end: 20060628
  4. PANTOPRAZOLE SODIUM [Concomitant]
  5. LIPANTHYL (FENOFIBRATE) [Concomitant]
  6. VALSARTAN [Concomitant]
  7. PRAZOSINE            (PRAZOSIN HYDROCHLORIDE) [Concomitant]
  8. DOMPERIDONE [Concomitant]

REACTIONS (1)
  - NEOPLASM MALIGNANT [None]
